FAERS Safety Report 17520603 (Version 1)
Quarter: 2020Q1

REPORT INFORMATION
  Report Type: Spontaneous
  Country: GB (occurrence: GB)
  Receive Date: 20200309
  Receipt Date: 20200309
  Transmission Date: 20200409
  Serious: No
  Sender: FDA-Public Use
  Company Number: GB-EMD SERONO-9149103

PATIENT
  Sex: Female

DRUGS (2)
  1. MAVENCLAD [Suspect]
     Active Substance: CLADRIBINE
     Dosage: YEAR TWO WEEK ONE THERAPY. THE PATIENT RECEIVED TWO TABLETS (EACH OF 10 MG) ON DAY 1 AND ONE TABLET
     Route: 048
     Dates: start: 20200221
  2. MAVENCLAD [Suspect]
     Active Substance: CLADRIBINE
     Indication: MULTIPLE SCLEROSIS
     Dosage: YEAR ONE THERAPY.
     Route: 048
     Dates: start: 201902

REACTIONS (2)
  - Fatigue [Unknown]
  - Malaise [Unknown]
